FAERS Safety Report 5467967-4 (Version None)
Quarter: 2007Q3

REPORT INFORMATION
  Report Type: 
  Country: None (occurrence: None)
  Receive Date: 20070924
  Receipt Date: 20070917
  Transmission Date: 20080115
  Serious: Yes (Hospitalization)
  Sender: FDA-Public Use
  Company Number: 056-C5013-07070921

PATIENT
  Age: 77 Year
  Sex: Female
  Weight: 77 kg

DRUGS (7)
  1. CC-5013 (LENALIDOMIDE) (CAPSULES) [Suspect]
     Indication: LYMPHOMA
     Dosage: 25 MG, DAY 1-21, ORAL, 25 MG/M2, ORAL
     Route: 048
     Dates: start: 20070706, end: 20070718
  2. CC-5013 (LENALIDOMIDE) (CAPSULES) [Suspect]
     Indication: LYMPHOMA
     Dosage: 25 MG, DAY 1-21, ORAL, 25 MG/M2, ORAL
     Route: 048
     Dates: start: 20070720
  3. LEVOTHYROXINE SODIUM [Concomitant]
  4. CARBAMAZEPINE [Concomitant]
  5. PROVAMES (ESTRADIOL) [Concomitant]
  6. PROGESTERONE BIOGARAN [Concomitant]
  7. CELIPROLOL (CELIPROLOL) [Concomitant]

REACTIONS (4)
  - BLOOD CHLORIDE DECREASED [None]
  - DRUG INTERACTION [None]
  - EPILEPSY [None]
  - PLATELET COUNT DECREASED [None]
